FAERS Safety Report 11833713 (Version 1)
Quarter: 2015Q4

REPORT INFORMATION
  Report Type: Spontaneous
  Country: US (occurrence: US)
  Receive Date: 20151214
  Receipt Date: 20151214
  Transmission Date: 20160305
  Serious: Yes (Death, Hospitalization)
  Sender: FDA-Public Use
  Company Number: US-BAYER-2015-486380

PATIENT
  Age: 33 Year
  Sex: Male

DRUGS (12)
  1. LORAZEPAM. [Suspect]
     Active Substance: LORAZEPAM
  2. MACROGOL 3350 [Suspect]
     Active Substance: POLYETHYLENE GLYCOL 3350
     Route: 048
  3. CARISOPRODOL. [Suspect]
     Active Substance: CARISOPRODOL
  4. MORPHINE [Suspect]
     Active Substance: MORPHINE
  5. DIPHENHYDRAMINE W/PARACETAMOL [Suspect]
     Active Substance: ACETAMINOPHEN\DIPHENHYDRAMINE
  6. OXYBUTYNIN [Suspect]
     Active Substance: OXYBUTYNIN
  7. HYDROMORPHONE [Suspect]
     Active Substance: HYDROMORPHONE
  8. TIZANIDINE. [Suspect]
     Active Substance: TIZANIDINE
  9. BACLOFEN. [Suspect]
     Active Substance: BACLOFEN
  10. PROMETHAZINE [Suspect]
     Active Substance: PROMETHAZINE\PROMETHAZINE HYDROCHLORIDE
  11. LACTULOSE. [Suspect]
     Active Substance: LACTULOSE
  12. CLONAZEPAM. [Suspect]
     Active Substance: CLONAZEPAM

REACTIONS (1)
  - Toxicity to various agents [Fatal]
